FAERS Safety Report 5494762-2 (Version None)
Quarter: 2007Q4

REPORT INFORMATION
  Report Type: 
  Country: None (occurrence: None)
  Receive Date: 20071015
  Receipt Date: 20070821
  Transmission Date: 20080405
  Serious: No
  Sender: FDA-Public Use
  Company Number: 2007SP002923

PATIENT
  Age: 56 Year
  Sex: Male
  Weight: 104.3273 kg

DRUGS (8)
  1. LUNESTA [Suspect]
     Indication: INSOMNIA
     Dosage: 2 MG QM ORAL
     Route: 048
     Dates: start: 20060101
  2. METFORMIN HCL [Concomitant]
  3. PANTOPRAZOLE SODIUM [Concomitant]
  4. CELEXA [Concomitant]
  5. CRESTOR [Concomitant]
  6. ACETYLSALICYLIC ACID SRT [Concomitant]
  7. FISH OIL [Concomitant]
  8. VITAMINS [Concomitant]

REACTIONS (1)
  - DYSGEUSIA [None]
